FAERS Safety Report 6691640-8 (Version None)
Quarter: 2010Q2

REPORT INFORMATION
  Report Type: 
  Country: None (occurrence: None)
  Receive Date: 20100422
  Receipt Date: 20090526
  Transmission Date: 20101027
  Serious: No
  Sender: FDA-Public Use
  Company Number: US-ASTRAZENECA-2009UW13566

PATIENT
  Age: 83 Year
  Sex: Female
  Weight: 59 kg

DRUGS (9)
  1. METOPROLOL SUCCINATE [Suspect]
     Route: 048
  2. ASPIRIN [Concomitant]
  3. PREVACID [Concomitant]
  4. COZAAR [Concomitant]
  5. SOTALOL HCL [Concomitant]
  6. COUMADIN [Concomitant]
  7. DARVOCET [Concomitant]
  8. FOSAMAX [Concomitant]
  9. VALIUM [Concomitant]

REACTIONS (1)
  - BREAST PAIN [None]
